FAERS Safety Report 6249275-7 (Version None)
Quarter: 2009Q2

REPORT INFORMATION
  Report Type: 
  Country: None (occurrence: None)
  Receive Date: 20090629
  Receipt Date: 20090615
  Transmission Date: 20091009
  Serious: Yes (Death, Hospitalization)
  Sender: FDA-Public Use
  Company Number: RU-MERCK-0906RUS00006

PATIENT
  Age: 69 Year
  Sex: Female
  Weight: 86 kg

DRUGS (10)
  1. ZETIA [Suspect]
     Indication: DYSLIPIDAEMIA
     Route: 065
     Dates: start: 20090508, end: 20090511
  2. ATORVASTATIN CALCIUM [Concomitant]
     Indication: DYSLIPIDAEMIA
     Route: 048
     Dates: start: 20090508, end: 20090511
  3. CARVEDILOL [Concomitant]
     Indication: CARDIAC FAILURE CHRONIC
     Route: 048
     Dates: start: 20090511, end: 20090611
  4. CARVEDILOL [Concomitant]
     Indication: HYPERTONIA
     Route: 048
     Dates: start: 20090511, end: 20090611
  5. PERINDOPRIL ERBUMINE [Concomitant]
     Indication: CARDIAC FAILURE CHRONIC
     Route: 048
     Dates: start: 20090511, end: 20090611
  6. PERINDOPRIL ERBUMINE [Concomitant]
     Indication: HYPERTONIA
     Route: 048
     Dates: start: 20090511, end: 20090611
  7. DIGOXIN [Concomitant]
     Indication: CARDIAC FAILURE CHRONIC
     Route: 048
     Dates: start: 20090511, end: 20090611
  8. FUROSEMIDE [Concomitant]
     Indication: CARDIAC FAILURE CHRONIC
     Route: 048
     Dates: start: 20090511, end: 20090611
  9. SPIRONOLACTONE [Concomitant]
     Indication: CARDIAC FAILURE CHRONIC
     Route: 048
     Dates: start: 20090511, end: 20090611
  10. ASPIRIN [Concomitant]
     Indication: CARDIAC FAILURE CHRONIC
     Route: 048
     Dates: start: 20090511, end: 20090611

REACTIONS (3)
  - CARDIAC ASTHMA [None]
  - CARDIAC FAILURE CONGESTIVE [None]
  - HYPOTONIA [None]
